FAERS Safety Report 8552564-4 (Version None)
Quarter: 2012Q3

REPORT INFORMATION
  Report Type: 
  Country: None (occurrence: None)
  Receive Date: 20120724
  Receipt Date: 20120724
  Transmission Date: 20120928
  Serious: Yes (Other)
  Sender: FDA-Public Use
  Company Number: None

PATIENT
  Age: 74 Year
  Sex: Female
  Weight: 76.2043 kg

DRUGS (1)
  1. ATORVASTATIN CALCIUM [Suspect]
     Dosage: 40 MG DAILY PO
     Route: 048
     Dates: start: 20111201, end: 20120410

REACTIONS (2)
  - PRODUCT SUBSTITUTION ISSUE [None]
  - MYALGIA [None]
